FAERS Safety Report 13134240 (Version 1)
Quarter: 2017Q1

REPORT INFORMATION
  Report Type: Spontaneous
  Country: US (occurrence: US)
  Receive Date: 20170120
  Receipt Date: 20170120
  Transmission Date: 20170428
  Serious: No
  Sender: FDA-Public Use
  Company Number: US-PFIZER INC-2017022867

PATIENT
  Age: 59 Year
  Sex: Female

DRUGS (4)
  1. CELEBREX [Suspect]
     Active Substance: CELECOXIB
     Dosage: UNK
  2. CIPRO [Suspect]
     Active Substance: CIPROFLOXACIN HYDROCHLORIDE
     Dosage: UNK
  3. BENADRYL [Suspect]
     Active Substance: DIPHENHYDRAMINE HYDROCHLORIDE
     Dosage: UNK
  4. AMITRIPTYLINE HCL [Suspect]
     Active Substance: AMITRIPTYLINE
     Dosage: UNK

REACTIONS (1)
  - Drug hypersensitivity [Unknown]
